FAERS Safety Report 10825818 (Version 1)
Quarter: 2015Q1

REPORT INFORMATION
  Report Type: Spontaneous
  Country: GB (occurrence: GB)
  Receive Date: 20150219
  Receipt Date: 20150219
  Transmission Date: 20150721
  Serious: Yes (Other)
  Sender: FDA-Public Use
  Company Number: GB-ACCORD-028515

PATIENT
  Sex: Male

DRUGS (7)
  1. RANITIDINE [Concomitant]
     Active Substance: RANITIDINE\RANITIDINE HYDROCHLORIDE
     Route: 048
  2. FLUOROURACIL. [Suspect]
     Active Substance: FLUOROURACIL
     Indication: COLORECTAL CANCER
     Dosage: OXMDG REGIME, ALSO RECEIVED ON 22-DEC-2014
     Route: 040
     Dates: start: 20141126
  3. OXALIPLATIN FRESENIUS KABI [Suspect]
     Active Substance: OXALIPLATIN
     Indication: COLORECTAL CANCER
     Dosage: OXMDG REGIME, REDUCED ON AN UNKNOWN DATE??STRENGTH: 5MG/ML
     Route: 042
     Dates: start: 20141126
  4. OXALIPLATIN. [Suspect]
     Active Substance: OXALIPLATIN
     Indication: COLORECTAL CANCER
     Dosage: OXMDG REGIME, REDUCED ON AN UNKNOWN DATE??STRENGTH: 5MG/ML
     Route: 042
     Dates: start: 20141222
  5. BAXTER HEALTHCARE SODIUM CHLORIDE [Suspect]
     Active Substance: SODIUM CHLORIDE
     Indication: COLORECTAL CANCER
     Dates: start: 20141126
  6. EMEND [Concomitant]
     Active Substance: APREPITANT
     Route: 048
     Dates: start: 20141128
  7. FOLINIC ACID [Concomitant]
     Active Substance: LEUCOVORIN
     Dosage: OXMDG REGIME

REACTIONS (9)
  - Neuropathy peripheral [Not Recovered/Not Resolved]
  - Incorrect drug administration rate [Recovered/Resolved]
  - Infusion related reaction [Not Recovered/Not Resolved]
  - Decreased appetite [Recovered/Resolved]
  - Fatigue [Not Recovered/Not Resolved]
  - Oral pain [Recovered/Resolved]
  - Headache [Recovered/Resolved]
  - Cough [Not Recovered/Not Resolved]
  - Mood swings [Not Recovered/Not Resolved]

NARRATIVE: CASE EVENT DATE: 20141127
